FAERS Safety Report 6027393-6 (Version None)
Quarter: 2008Q4

REPORT INFORMATION
  Report Type: 
  Country: None (occurrence: None)
  Receive Date: 20081222
  Receipt Date: 20080926
  Transmission Date: 20090506
  Serious: No
  Sender: FDA-Public Use
  Company Number: US-WYE-H06171208

PATIENT
  Age: 58 Year
  Sex: Male
  Weight: 129.39 kg

DRUGS (3)
  1. PRISTIQ [Suspect]
     Indication: ANXIETY
     Dosage: ORAL
     Route: 048
     Dates: start: 20080921, end: 20080926
  2. COUMADIN [Concomitant]
  3. CARDIZEM [Concomitant]

REACTIONS (6)
  - DIARRHOEA [None]
  - DIZZINESS [None]
  - DRY MOUTH [None]
  - HEADACHE [None]
  - NAUSEA [None]
  - VOMITING [None]
